FAERS Safety Report 4568450-0 (Version None)
Quarter: 2005Q1

REPORT INFORMATION
  Report Type: 
  Country: None (occurrence: None)
  Receive Date: 20050131
  Receipt Date: 20050121
  Transmission Date: 20050727
  Serious: Yes (Other)
  Sender: FDA-Public Use
  Company Number: 2005-01-1576

PATIENT
  Age: 48 Year
  Sex: Male

DRUGS (1)
  1. INTRON A [Suspect]
     Indication: HEPATITIS C

REACTIONS (3)
  - OPTIC ISCHAEMIC NEUROPATHY [None]
  - OPTIC NERVE DISORDER [None]
  - RETINAL VASCULAR DISORDER [None]
